FAERS Safety Report 9802714 (Version 1)
Quarter: 2014Q1

REPORT INFORMATION
  Report Type: Report from Study
  Country: US (occurrence: US)
  Receive Date: 20140108
  Receipt Date: 20140108
  Transmission Date: 20141002
  Serious: Yes (Other)
  Sender: FDA-Public Use
  Company Number: US-JNJFOC-20140100035

PATIENT
  Sex: 0

DRUGS (2)
  1. ZYRTEC UNSPECIFIED [Suspect]
     Route: 048
  2. ZYRTEC UNSPECIFIED [Suspect]
     Indication: PRODUCT USED FOR UNKNOWN INDICATION
     Route: 048

REACTIONS (1)
  - Visual impairment [Unknown]
